FAERS Safety Report 23946728 (Version 1)
Quarter: 2024Q2

REPORT INFORMATION
  Report Type: Spontaneous
  Country: CN (occurrence: None)
  Receive Date: 20240606
  Receipt Date: 20240606
  Transmission Date: 20240715
  Serious: Yes (Life-Threatening)
  Sender: FDA-Public Use
  Company Number: CN-ROCHE-3577153

PATIENT
  Age: 27 Year
  Sex: Male
  Weight: 64 kg

DRUGS (2)
  1. MABTHERA [Suspect]
     Active Substance: RITUXIMAB
     Indication: Nephrotic syndrome
     Route: 041
     Dates: start: 20240519, end: 20240519
  2. SODIUM CHLORIDE [Concomitant]
     Active Substance: SODIUM CHLORIDE
     Route: 042
     Dates: start: 20240519, end: 20240519

REACTIONS (5)
  - Hyperhidrosis [Recovering/Resolving]
  - Tremor [Recovering/Resolving]
  - Pyrexia [Recovering/Resolving]
  - Flushing [Recovering/Resolving]
  - Off label use [Unknown]

NARRATIVE: CASE EVENT DATE: 20240519
